FAERS Safety Report 18209554 (Version 5)
Quarter: 2022Q1

REPORT INFORMATION
  Report Type: Report from Study
  Country: US (occurrence: US)
  Receive Date: 20200828
  Receipt Date: 20220307
  Transmission Date: 20220423
  Serious: No
  Sender: FDA-Public Use
  Company Number: NVSC2020US234838

PATIENT
  Age: 66 Year
  Sex: Female

DRUGS (1)
  1. GLATOPA [Suspect]
     Active Substance: GLATIRAMER ACETATE
     Indication: Multiple sclerosis
     Dosage: 40 MG, OTHER (GLATOPA 40 MG 3X PER WEEK)
     Route: 058
     Dates: start: 20200824, end: 20200824

REACTIONS (4)
  - Pain in extremity [Unknown]
  - Skin disorder [Unknown]
  - Injection site urticaria [Unknown]
  - Injection site pain [Unknown]

NARRATIVE: CASE EVENT DATE: 20200824
